FAERS Safety Report 26205919 (Version 1)
Quarter: 2025Q4

REPORT INFORMATION
  Report Type: Spontaneous
  Country: US (occurrence: US)
  Receive Date: 20251229
  Receipt Date: 20251229
  Transmission Date: 20260117
  Serious: Yes (Hospitalization, Other)
  Sender: PHARMOBEDIENT CONSULTING, LLC
  Company Number: US-Pharmobedient-000719

PATIENT
  Age: 50 Year
  Sex: Male

DRUGS (3)
  1. OXALIPLATIN [Suspect]
     Active Substance: OXALIPLATIN
     Indication: Metastatic carcinoid tumour
  2. LEUCOVORIN [Concomitant]
     Active Substance: LEUCOVORIN\LEUCOVORIN CALCIUM
     Indication: Metastatic carcinoid tumour
  3. FLUOROURACIL [Concomitant]
     Active Substance: FLUOROURACIL
     Indication: Metastatic carcinoid tumour

REACTIONS (1)
  - Generalised tonic-clonic seizure [Unknown]
